FAERS Safety Report 21538917 (Version 2)
Quarter: 2023Q1

REPORT INFORMATION
  Report Type: Report from Study
  Country: US (occurrence: US)
  Receive Date: 20221102
  Receipt Date: 20230202
  Transmission Date: 20230418
  Serious: No
  Sender: FDA-Public Use
  Company Number: US-ABBVIE-4184402

PATIENT
  Age: 62 Year
  Sex: Male

DRUGS (51)
  1. IMBRUVICA [Suspect]
     Active Substance: IBRUTINIB
     Indication: Chronic lymphocytic leukaemia
     Dosage: TIME INTERVAL: 0.33333333 DAYS
     Route: 048
     Dates: start: 20220219, end: 202209
  2. IMBRUVICA [Suspect]
     Active Substance: IBRUTINIB
     Indication: Chronic lymphocytic leukaemia
     Route: 048
  3. green superfood [Concomitant]
     Indication: Product used for unknown indication
  4. Mushroom synergy [Concomitant]
     Indication: Product used for unknown indication
  5. MODIFIED CITRUS PECTIN [Concomitant]
     Indication: Product used for unknown indication
  6. ASPIRIN [Concomitant]
     Active Substance: ASPIRIN
     Indication: Product used for unknown indication
  7. Dynamic health graviola blend [Concomitant]
     Indication: Product used for unknown indication
  8. MEGA GLA [Concomitant]
     Indication: Product used for unknown indication
  9. MUSHROOM BLEND [Concomitant]
     Indication: Product used for unknown indication
  10. TOPROL XL [Concomitant]
     Active Substance: METOPROLOL SUCCINATE
     Indication: Product used for unknown indication
  11. OMEGA-3 FATTY ACIDS [Concomitant]
     Active Substance: OMEGA-3 FATTY ACIDS
     Indication: Product used for unknown indication
  12. OMEGA-3 FATTY ACIDS [Concomitant]
     Active Substance: OMEGA-3 FATTY ACIDS
     Indication: Product used for unknown indication
  13. REPATHA [Concomitant]
     Active Substance: EVOLOCUMAB
     Indication: Product used for unknown indication
  14. TELMISARTAN [Concomitant]
     Active Substance: TELMISARTAN
     Indication: Product used for unknown indication
  15. Proteinex P100 [Concomitant]
     Indication: Product used for unknown indication
  16. Curcumin gel 95+ [Concomitant]
     Indication: Product used for unknown indication
  17. SHARK LIVER OIL [Concomitant]
     Active Substance: SHARK LIVER OIL
     Indication: Product used for unknown indication
  18. HERBALS\SAW PALMETTO [Concomitant]
     Active Substance: HERBALS\SAW PALMETTO
     Indication: Product used for unknown indication
  19. VITAMIN C [Concomitant]
     Active Substance: ASCORBIC ACID
     Indication: Product used for unknown indication
  20. UBIQUINOL [Concomitant]
     Active Substance: UBIQUINOL
     Indication: Product used for unknown indication
  21. GASTROCROM [Concomitant]
     Active Substance: CROMOLYN SODIUM
     Indication: Product used for unknown indication
  22. DIETARY SUPPLEMENT\RESVERATROL [Concomitant]
     Active Substance: DIETARY SUPPLEMENT\RESVERATROL
     Indication: Product used for unknown indication
  23. VITAMIN D3 [Concomitant]
     Active Substance: CHOLECALCIFEROL
     Indication: Product used for unknown indication
  24. PREDNISONE [Suspect]
     Active Substance: PREDNISONE
     Indication: Product used for unknown indication
     Route: 065
  25. DIETARY SUPPLEMENT [Concomitant]
     Active Substance: DIETARY SUPPLEMENT
     Indication: Product used for unknown indication
  26. EUROLOL [Concomitant]
     Indication: Product used for unknown indication
  27. BONE RESTORE [Concomitant]
     Indication: Product used for unknown indication
  28. PREDNISONE [Suspect]
     Active Substance: PREDNISONE
     Indication: Product used for unknown indication
     Route: 065
  29. cruciferous VEGETABLE EXTRACT [Concomitant]
     Indication: Product used for unknown indication
  30. LECITHINE [Concomitant]
     Indication: Product used for unknown indication
  31. AMPK METABOLIC ACTIVATOR [Concomitant]
     Indication: Product used for unknown indication
  32. TYLENOL EXTRA STRENGTH [Concomitant]
     Active Substance: ACETAMINOPHEN
     Indication: Product used for unknown indication
  33. Arthritis Pain Relief [Concomitant]
     Indication: Product used for unknown indication
  34. DIETARY SUPPLEMENT\HERBALS\MILK THISTLE [Concomitant]
     Active Substance: DIETARY SUPPLEMENT\HERBALS\MILK THISTLE
     Indication: Product used for unknown indication
  35. SUPER BETA [Concomitant]
     Indication: Product used for unknown indication
  36. Osteo Bi-Flex Regular Strength [Concomitant]
     Indication: Product used for unknown indication
  37. ASPIRIN [Concomitant]
     Active Substance: ASPIRIN
     Indication: Product used for unknown indication
     Dosage: 81
  38. VITAMINS [Concomitant]
     Active Substance: VITAMINS
     Indication: Product used for unknown indication
  39. TEA LEAF [Concomitant]
     Active Substance: TEA LEAF
     Indication: Product used for unknown indication
     Dosage: MEGA
  40. TOPROL XL [Concomitant]
     Active Substance: METOPROLOL SUCCINATE
     Indication: Product used for unknown indication
  41. PALATTE  OF SLEEP [Concomitant]
     Indication: Product used for unknown indication
  42. ATRERIAL PROTECT [Concomitant]
     Indication: Product used for unknown indication
  43. immune modulators [Concomitant]
     Indication: Product used for unknown indication
  44. GRAVIOLA [Concomitant]
     Indication: Product used for unknown indication
  45. DIETARY SUPPLEMENT [Concomitant]
     Active Substance: DIETARY SUPPLEMENT
     Indication: Product used for unknown indication
  46. MEDITERRANEAN BLEND [Concomitant]
     Indication: Product used for unknown indication
  47. DIETARY SUPPLEMENT [Concomitant]
     Active Substance: DIETARY SUPPLEMENT
     Indication: Product used for unknown indication
  48. Lecithin Concentrate [Concomitant]
     Indication: Product used for unknown indication
  49. Curcumin 95 [Concomitant]
     Indication: Product used for unknown indication
  50. senolytic activator [Concomitant]
     Indication: Product used for unknown indication
  51. LEVOFLOXACIN HEMIHYDRATE [Suspect]
     Active Substance: LEVOFLOXACIN

REACTIONS (3)
  - Clavicle fracture [Recovering/Resolving]
  - Adverse drug reaction [Recovered/Resolved]
  - Inflammation [Recovered/Resolved]

NARRATIVE: CASE EVENT DATE: 20220901
